FAERS Safety Report 5824055-2 (Version None)
Quarter: 2008Q3

REPORT INFORMATION
  Report Type: 
  Country: None (occurrence: None)
  Receive Date: 20080728
  Receipt Date: 20080717
  Transmission Date: 20090109
  Serious: Yes (Death, Life-Threatening, Hospitalization)
  Sender: FDA-Public Use
  Company Number: IN-BRISTOL-MYERS SQUIBB COMPANY-14277461

PATIENT
  Age: 37 Year
  Sex: Male

DRUGS (11)
  1. ETOPOSIDE [Suspect]
     Indication: TESTIS CANCER
     Dosage: THERAPY DATES: APR06-JUL06                JUL06-UNKNOWN
     Dates: start: 20060701
  2. ETOPOSIDE [Suspect]
     Indication: BURKITT'S LEUKAEMIA
     Dosage: THERAPY DATES: APR06-JUL06                JUL06-UNKNOWN
     Dates: start: 20060701
  3. CISPLATIN [Suspect]
     Indication: TESTIS CANCER
     Dosage: THERAPY DATES: APR06-JUL06                JUL06-UNKNOWN
     Dates: start: 20060701
  4. IFOSFAMIDE [Suspect]
     Indication: TESTIS CANCER
     Dosage: THERAPY DATES: JUL06-UNKNOWN                2007-UNKNOWN
     Dates: start: 20070101
  5. IFOSFAMIDE [Suspect]
     Indication: BURKITT'S LEUKAEMIA
     Dosage: THERAPY DATES: JUL06-UNKNOWN                2007-UNKNOWN
     Dates: start: 20070101
  6. CYCLOPHOSPHAMIDE [Suspect]
     Indication: BURKITT'S LEUKAEMIA
  7. DOXORUBICIN HCL [Suspect]
     Indication: BURKITT'S LYMPHOMA
  8. VINCRISTINE [Suspect]
     Indication: TESTIS CANCER
     Dates: start: 20070101
  9. METHOTREXATE [Suspect]
     Indication: BURKITT'S LYMPHOMA
  10. STARASID [Suspect]
     Indication: BURKITT'S LYMPHOMA
  11. MESNA [Concomitant]

REACTIONS (5)
  - BONE MARROW TOXICITY [None]
  - BURKITT'S LEUKAEMIA [None]
  - DISSEMINATED INTRAVASCULAR COAGULATION [None]
  - HEPATOTOXICITY [None]
  - NEUROTOXICITY [None]
